FAERS Safety Report 7125482-6 (Version None)
Quarter: 2010Q4

REPORT INFORMATION
  Report Type: 
  Country: None (occurrence: None)
  Receive Date: 20101129
  Receipt Date: 20101119
  Transmission Date: 20110411
  Serious: Yes (Other)
  Sender: FDA-Public Use
  Company Number: US-ROCHE-736082

PATIENT
  Sex: Male
  Weight: 81.6 kg

DRUGS (7)
  1. XELODA [Suspect]
     Indication: RECTAL CANCER STAGE III
     Dosage: FREQUENCY: D1-14
     Route: 048
     Dates: start: 20100831
  2. ELOXATIN [Suspect]
     Indication: RECTAL CANCER STAGE III
     Dosage: FORM: INFUSION; RECEIVED 3 CYCLES; FREQ: EVERY 2-3 WEEKS
     Route: 042
     Dates: start: 20100713
  3. FLUOROURACIL [Suspect]
     Indication: RECTAL CANCER
     Dosage: FORM: INFUSION; 3 CYCLES; DOSE: 1500 MG AMP TO 6000 MG AMP
     Route: 042
     Dates: start: 20100419
  4. FLUOROURACIL [Suspect]
     Dosage: DECREASE DAILY DOSE + IVP + PUMP
     Route: 042
     Dates: end: 20100817
  5. LEUCOVORIN [Concomitant]
     Dosage: FORM: INFUSION; RECEIVED THREE CYCLES
  6. ARIXTRA [Concomitant]
     Indication: PREDISPOSITION TO DISEASE
     Route: 058
     Dates: start: 20100713
  7. LOVENOX [Concomitant]
     Indication: PREDISPOSITION TO DISEASE
     Route: 058
     Dates: start: 20100413, end: 20100713

REACTIONS (2)
  - CHEST PAIN [None]
  - MUSCLE SPASMS [None]
